FAERS Safety Report 7243316-6 (Version None)
Quarter: 2011Q1

REPORT INFORMATION
  Report Type: 
  Country: None (occurrence: None)
  Receive Date: 20110125
  Receipt Date: 20100924
  Transmission Date: 20110831
  Serious: No
  Sender: FDA-Public Use
  Company Number: US-BRISTOL-MYERS SQUIBB COMPANY-15302763

PATIENT
  Sex: Female

DRUGS (1)
  1. PLATINOL [Suspect]
     Dates: end: 20100101

REACTIONS (1)
  - NEUROPATHY PERIPHERAL [None]
